FAERS Safety Report 9015596 (Version 1)
Quarter: 2013Q1

REPORT INFORMATION
  Report Type: Spontaneous
  Country: US (occurrence: US)
  Receive Date: 20130116
  Receipt Date: 20130116
  Transmission Date: 20140127
  Serious: Yes (Other)
  Sender: FDA-Public Use
  Company Number: US-009507513-1301XAA004356

PATIENT
  Age: 71 Year
  Sex: Female

DRUGS (6)
  1. SINGULAIR [Suspect]
     Indication: ASTHMA
     Dosage: UNK MG, UNK
     Route: 055
  2. MIRTAZAPINE [Suspect]
     Dosage: 15 MG, HS
  3. BENDROFLUMETHIAZIDE [Suspect]
  4. ATROVENT [Suspect]
     Route: 055
  5. VALSARTAN [Suspect]
  6. THEOPHYLLINE [Suspect]

REACTIONS (5)
  - Lower respiratory tract infection [Unknown]
  - Dyspnoea [Unknown]
  - Depression [Unknown]
  - Cough [Unknown]
  - Asthma [Unknown]
